FAERS Safety Report 19179341 (Version 1)
Quarter: 2021Q2

REPORT INFORMATION
  Report Type: Spontaneous
  Country: US (occurrence: US)
  Receive Date: 20210423
  Receipt Date: 20210423
  Transmission Date: 20210717
  Serious: Yes (Hospitalization)
  Sender: FDA-Public Use
  Company Number: None

PATIENT
  Age: 68 Year
  Sex: Male
  Weight: 105.3 kg

DRUGS (9)
  1. METOPROLOL. [Concomitant]
     Active Substance: METOPROLOL
  2. ATORVASTATIN [Concomitant]
     Active Substance: ATORVASTATIN
  3. VITAMIN E [Concomitant]
     Active Substance: .ALPHA.-TOCOPHEROL
  4. LISINOPRIL. [Concomitant]
     Active Substance: LISINOPRIL
  5. LOW DOSE ASPIRIN [Concomitant]
     Active Substance: ASPIRIN
  6. VASCEPA [Concomitant]
     Active Substance: ICOSAPENT ETHYL
  7. SILODOSIN. [Suspect]
     Active Substance: SILODOSIN
     Indication: PROSTATOMEGALY
     Dosage: ?          QUANTITY:1 CAPSULE(S);?
     Route: 048
  8. CLOPIDOGREL [Concomitant]
     Active Substance: CLOPIDOGREL BISULFATE
  9. LEVOTHYROXINE. [Concomitant]
     Active Substance: LEVOTHYROXINE

REACTIONS (4)
  - Blood pressure decreased [None]
  - Respiratory arrest [None]
  - Pulse absent [None]
  - Loss of consciousness [None]

NARRATIVE: CASE EVENT DATE: 20210417
